FAERS Safety Report 14013516 (Version 3)
Quarter: 2017Q4

REPORT INFORMATION
  Report Type: Spontaneous
  Country: JP (occurrence: JP)
  Receive Date: 20170926
  Receipt Date: 20171127
  Transmission Date: 20180321
  Serious: Yes (Death, Other)
  Sender: FDA-Public Use
  Company Number: JP-PFIZER INC-2017414813

PATIENT
  Age: 91 Year
  Sex: Female
  Weight: 36.1 kg

DRUGS (24)
  1. OMEPRAZOLE. [Concomitant]
     Active Substance: OMEPRAZOLE
     Dosage: UNK UNK, 1X/DAY
     Route: 042
     Dates: start: 20170830, end: 20170831
  2. LOBU [Concomitant]
     Active Substance: LOBUCAVIR
     Dosage: UNK
     Route: 065
  3. LEVETIRACETAM. [Concomitant]
     Active Substance: LEVETIRACETAM
     Indication: SEIZURE
     Dosage: UNK
     Route: 065
  4. MAGNESIUM OXIDE. [Concomitant]
     Active Substance: MAGNESIUM OXIDE
     Dosage: 250 MG, 3X/DAY
     Route: 048
     Dates: start: 20170830, end: 20170915
  5. E KEPPRA [Concomitant]
     Active Substance: LEVETIRACETAM
     Indication: SEIZURE
     Dosage: 500 MG, 2X/DAY
     Route: 048
     Dates: start: 20170830, end: 20170831
  6. NEO-MINOPHAGEN C [Concomitant]
     Active Substance: AMMONIUM GLYCYRRHIZATE
     Dosage: 20 ML, 1X/DAY
     Route: 042
     Dates: start: 20170831, end: 20170911
  7. BISONO [Concomitant]
     Active Substance: BISOPROLOL
     Dosage: UNK UNK, 1X/DAY
     Route: 062
     Dates: start: 20170911, end: 20170915
  8. TAZOPIPE [Concomitant]
     Active Substance: PIPERACILLIN SODIUM\TAZOBACTAM SODIUM
     Dosage: 4.5 G, 3X/DAY
     Route: 042
     Dates: start: 20170831, end: 20170915
  9. MIGLITOL. [Concomitant]
     Active Substance: MIGLITOL
     Dosage: UNK
     Route: 065
  10. REBAMIPIDE [Concomitant]
     Active Substance: REBAMIPIDE
     Dosage: UNK
     Route: 065
  11. GOSHAJINKIGAN [Concomitant]
     Active Substance: HERBALS
     Dosage: UNK
     Route: 065
  12. E KEPPRA [Suspect]
     Active Substance: LEVETIRACETAM
     Indication: SEIZURE
     Dosage: 500 MG, 2X/DAY
     Route: 048
     Dates: start: 20170830, end: 20170831
  13. URSODEOXYCHOLIC ACID [Concomitant]
     Active Substance: URSODIOL
     Dosage: UNK UNK, 3X/DAY
     Route: 048
     Dates: start: 20170831, end: 20170915
  14. FUROSEMIDE. [Concomitant]
     Active Substance: FUROSEMIDE
     Dosage: UNK UNK, 1X/DAY
     Route: 048
     Dates: start: 20170831, end: 20170915
  15. CEFTRIAXONE NA [Concomitant]
     Active Substance: CEFTRIAXONE
     Indication: PNEUMONIA
     Dosage: 2 G, 1X/DAY
     Route: 041
     Dates: start: 20170831, end: 20170831
  16. CALFINA [Concomitant]
     Active Substance: ALFACALCIDOL
     Dosage: UNK
     Route: 065
  17. VERAPAMIL HYDROCHLORIDE. [Concomitant]
     Active Substance: VERAPAMIL HYDROCHLORIDE
     Dosage: UNK
     Route: 065
  18. FOSPHENYTOIN SODIUM. [Suspect]
     Active Substance: FOSPHENYTOIN SODIUM
     Indication: SEIZURE
     Dosage: 750 MG, 1X/DAY
     Route: 041
     Dates: start: 20170830, end: 20170830
  19. CEFTRIAXONE NA [Suspect]
     Active Substance: CEFTRIAXONE
     Indication: PNEUMONIA
     Dosage: 2 GM (2 GM,1 IN 1 D)
     Route: 041
     Dates: start: 20170830, end: 20170831
  20. WARFARIN [Concomitant]
     Active Substance: WARFARIN
     Dosage: UNK
     Route: 065
     Dates: end: 20170828
  21. TOVIAZ [Concomitant]
     Active Substance: FESOTERODINE FUMARATE
     Dosage: UNK
     Route: 065
  22. FOSPHENYTOIN SODIUM. [Suspect]
     Active Substance: FOSPHENYTOIN SODIUM
     Indication: STATUS EPILEPTICUS
     Dosage: 225 MG, 1X/DAY
     Route: 041
     Dates: start: 20170831, end: 20170831
  23. VASOLAN [Concomitant]
     Active Substance: VERAPAMIL HYDROCHLORIDE
     Dosage: 40 MG, 2X/DAY
     Route: 048
     Dates: start: 20170830, end: 20170830
  24. TAKECAB [Concomitant]
     Active Substance: VONOPRAZAN FUMURATE
     Dosage: UNK UNK, 1X/DAY
     Route: 048
     Dates: start: 20170831, end: 20170915

REACTIONS (8)
  - Multiple organ dysfunction syndrome [Fatal]
  - Blood pressure decreased [Fatal]
  - Coagulopathy [Unknown]
  - Tachycardia [Fatal]
  - Hepatic function abnormal [Fatal]
  - Hepatitis fulminant [Fatal]
  - Renal impairment [Fatal]
  - Pneumonia [Fatal]

NARRATIVE: CASE EVENT DATE: 20170831
